FAERS Safety Report 4923574-0 (Version None)
Quarter: 2006Q1

REPORT INFORMATION
  Report Type: 
  Country: None (occurrence: None)
  Receive Date: 20060221
  Receipt Date: 20060208
  Transmission Date: 20060701
  Serious: Yes (Other)
  Sender: FDA-Public Use
  Company Number: 2006020271

PATIENT
  Age: 75 Year
  Sex: Male
  Weight: 108.8633 kg

DRUGS (6)
  1. LIPITOR [Suspect]
     Indication: BLOOD CHOLESTEROL
     Dosage: (10 MG)
  2. CARDURA [Suspect]
     Indication: RENAL DISORDER
  3. ASPIRIN [Concomitant]
  4. COREG [Concomitant]
  5. NAPROXEN [Concomitant]
  6. SULAR [Concomitant]

REACTIONS (2)
  - HEART RATE ABNORMAL [None]
  - RENAL DISORDER [None]
